FAERS Safety Report 5011454-4 (Version None)
Quarter: 2006Q2

REPORT INFORMATION
  Report Type: 
  Country: None (occurrence: None)
  Receive Date: 20060404
  Receipt Date: 20051103
  Transmission Date: 20061013
  Serious: No
  Sender: FDA-Public Use
  Company Number: US_0511123766

PATIENT
  Sex: Female

DRUGS (3)
  1. CYMBALTA [Suspect]
  2. NEURONTIN [Concomitant]
  3. MORPHINE SULFATE SR (MORPHINE SULFATE SR) [Concomitant]

REACTIONS (1)
  - HALLUCINATION [None]
